FAERS Safety Report 24249328 (Version 3)
Quarter: 2024Q4

REPORT INFORMATION
  Report Type: Spontaneous
  Country: FR (occurrence: FR)
  Receive Date: 20240826
  Receipt Date: 20241230
  Transmission Date: 20250115
  Serious: Yes (Hospitalization, Disabling, Other)
  Sender: BAXTER
  Company Number: None

PATIENT
  Age: 1 Month
  Sex: Male
  Weight: 2.72 kg

DRUGS (8)
  1. PRIMENE [Suspect]
     Active Substance: ALANINE\ARGININE\ASPARTIC ACID\CYSTEINE\GLUTAMIC ACID\GLYCINE\HISTIDINE\ISOLEUCINE\LEUCINE\LYSINE\ME
     Indication: Parenteral nutrition
     Dosage: (PRIMENE 10 PER CENT, SOLUTION FOR INJECTION FOR INFUSION) (DURATION: 1 DAYS) 68 ML, 24 HOURS
     Route: 042
     Dates: start: 20240720, end: 20240720
  2. PROPRANOLOL [Concomitant]
     Active Substance: PROPRANOLOL HYDROCHLORIDE
     Dosage: UNK
     Route: 065
  3. VITAMIN K1 [Concomitant]
     Active Substance: PHYTONADIONE
     Dosage: UNK
     Route: 065
  4. GAVISCON [Concomitant]
     Active Substance: ALUMINUM HYDROXIDE\MAGNESIUM CARBONATE
     Dosage: (GAVISCON INFANT, ORAL SUSPENSION IN BOTTLE) AT AN UNSPECIFIED DOSE AND FREQUENCY
     Route: 065
  5. DEXTROSE MONOHYDRATE\POTASSIUM CHLORIDE\SODIUM CHLORIDE [Concomitant]
     Active Substance: DEXTROSE MONOHYDRATE\POTASSIUM CHLORIDE\SODIUM CHLORIDE
     Dosage: (BIONOLYTE G10, SOLUTION FOR INJECTION FOR INFUSION) AT AN UNSPECIFIED DOSE AND FREQUENCY
     Route: 065
  6. ACETAMINOPHEN [Concomitant]
     Active Substance: ACETAMINOPHEN
     Dosage: UNK
     Route: 065
  7. OMEPRAZOLE [Concomitant]
     Active Substance: OMEPRAZOLE
     Dosage: UNK
     Route: 065
  8. UVESTEROL VITAMINE A D E C [Concomitant]
     Dosage: (UVESTEROL VITAMIN A.D.E.C.) AT AN UNSPECIFIED DOSE AND FREQUENCY
     Route: 065

REACTIONS (4)
  - Blister [Recovered/Resolved with Sequelae]
  - Cyanosis [Recovered/Resolved with Sequelae]
  - Induration [Recovered/Resolved with Sequelae]
  - Necrosis [Recovered/Resolved with Sequelae]

NARRATIVE: CASE EVENT DATE: 20240720
